FAERS Safety Report 21944392 (Version 1)
Quarter: 2023Q1

REPORT INFORMATION
  Report Type: Report from Study
  Country: IT (occurrence: IT)
  Receive Date: 20230202
  Receipt Date: 20230202
  Transmission Date: 20230417
  Serious: Yes (Hospitalization, Other)
  Sender: FDA-Public Use
  Company Number: None

PATIENT
  Age: 6 Year
  Sex: Female
  Weight: 18 kg

DRUGS (4)
  1. METHOTREXATE SODIUM [Suspect]
     Active Substance: METHOTREXATE SODIUM
     Indication: Acute lymphocytic leukaemia
     Dosage: 12 MILLIGRAM DAILY;
     Dates: start: 20221214, end: 20221214
  2. METHOTREXATE SODIUM [Suspect]
     Active Substance: METHOTREXATE SODIUM
     Indication: Acute lymphocytic leukaemia
     Dosage: 380 MG IV INFUSION OVER 30 MIN. + 3490 MG IV CONTINUOUS INFUSION FOR 23.5 HOURS FROM DAY 13 TO 12/14
     Route: 065
     Dates: start: 20221213, end: 20221214
  3. PURINETHOL [Suspect]
     Active Substance: MERCAPTOPURINE
     Indication: Acute lymphocytic leukaemia
     Dosage: 25 MG (1/2 TABLET) + 12.5 MG (1/4 TABLET) EVERY OTHER DAY FROM 11/14/22?REDUCED DOSE OF 12.5 MG (1/4
     Dates: start: 20221114
  4. LEUCOVORIN CALCIUM [Concomitant]
     Active Substance: LEUCOVORIN CALCIUM
     Indication: Product used for unknown indication
     Dosage: 30 MG IV AT 12 NOON ON 12/15/22 + 15 MG IV AT 6 P.M. ON 12/15/22 + 12 MG IV AT MIDNIGHT ON 15/12 AND
     Dates: start: 20221215, end: 20221216

REACTIONS (7)
  - Bacterial infection [Unknown]
  - Leukopenia [Recovered/Resolved]
  - Epistaxis [Unknown]
  - Enterovirus infection [Unknown]
  - Febrile neutropenia [Recovered/Resolved]
  - Thrombocytopenia [Recovered/Resolved]
  - Stomatitis [Recovering/Resolving]

NARRATIVE: CASE EVENT DATE: 20221213
